FAERS Safety Report 9502591 (Version 2)
Quarter: 2014Q1

REPORT INFORMATION
  Report Type: Spontaneous
  Country: US (occurrence: US)
  Receive Date: 20130906
  Receipt Date: 20140327
  Transmission Date: 20141002
  Serious: Yes (Other)
  Sender: FDA-Public Use
  Company Number: US-JNJFOC-20130901528

PATIENT
  Age: 28 Year
  Sex: Female

DRUGS (3)
  1. VERMOX [Suspect]
     Indication: ENTEROBIASIS
     Route: 048
     Dates: start: 19820612, end: 19820612
  2. FIORINAL NOS [Concomitant]
     Indication: HEADACHE
     Route: 048
     Dates: start: 19820612, end: 19820612
  3. PREMARIN [Concomitant]
     Route: 048
     Dates: start: 19820115, end: 19820423

REACTIONS (2)
  - Exposure during pregnancy [Recovered/Resolved]
  - Abortion spontaneous [Unknown]
